FAERS Safety Report 10211130 (Version 1)
Quarter: 2014Q2

REPORT INFORMATION
  Report Type: Spontaneous
  Country: US (occurrence: None)
  Receive Date: 20140528
  Receipt Date: 20140528
  Transmission Date: 20141212
  Serious: Yes (Other)
  Sender: FDA-Public Use
  Company Number: 2014US004189

PATIENT
  Age: 49 Year
  Sex: Male

DRUGS (3)
  1. ELIGARD [Suspect]
     Indication: PROSTATE CANCER
  2. ELIGARD [Suspect]
     Indication: PROSTATE CANCER
     Dosage: ONCE EVERY 4 MONTHS
  3. BICALUTAMIDE (BICALUTAMIDE) [Concomitant]

REACTIONS (7)
  - Skin necrosis [None]
  - Abscess sterile [None]
  - Erectile dysfunction [None]
  - Urinary tract obstruction [None]
  - Drug ineffective [None]
  - Injection site reaction [None]
  - Injection site induration [None]
